FAERS Safety Report 8455764-7 (Version None)
Quarter: 2012Q2

REPORT INFORMATION
  Report Type: 
  Country: None (occurrence: None)
  Receive Date: 20120621
  Receipt Date: 20120618
  Transmission Date: 20120825
  Serious: No
  Sender: FDA-Public Use
  Company Number: US-PFIZER INC-2012147065

PATIENT
  Sex: Female
  Weight: 38.549 kg

DRUGS (8)
  1. METOPROLOL [Concomitant]
     Indication: CARDIAC DISORDER
     Dosage: 25 MG, 2X/DAY
  2. IBUPROFEN (ADVIL) [Suspect]
     Indication: ARTHRALGIA
     Dosage: 300 MG, AS NEEDED TWO TO THREE TIMES A DAY
     Dates: end: 20120601
  3. COUMADIN [Concomitant]
     Indication: ANTICOAGULANT THERAPY
     Dosage: 4 MG, DAILY
  4. DIGOXIN [Concomitant]
     Indication: CARDIAC DISORDER
     Dosage: 0.125 MG, DAILY
  5. FUROSEMIDE [Concomitant]
     Dosage: 20 MG, DAILY
  6. RYTHMOL SR [Concomitant]
     Indication: CARDIAC DISORDER
     Dosage: 325 MG, DAILY
  7. MECLIZINE [Concomitant]
     Dosage: 25 MG, THREE TABLETS DAILY
  8. POTASSIUM CHLORIDE [Concomitant]
     Dosage: 10 MG, DAILY

REACTIONS (3)
  - PRURITUS [None]
  - RASH [None]
  - ERYTHEMA [None]
